FAERS Safety Report 4771912-4 (Version None)
Quarter: 2005Q3

REPORT INFORMATION
  Report Type: 
  Country: None (occurrence: None)
  Receive Date: 20050916
  Receipt Date: 20050623
  Transmission Date: 20060218
  Serious: Yes (Other)
  Sender: FDA-Public Use
  Company Number: US-GLAXOSMITHKLINE-A0574346A

PATIENT
  Sex: Female

DRUGS (6)
  1. REQUIP [Suspect]
     Indication: RESTLESS LEGS SYNDROME
     Route: 048
     Dates: start: 20050620, end: 20050623
  2. LAMICTAL [Suspect]
     Indication: DRUG USE FOR UNKNOWN INDICATION
     Route: 065
  3. ZYPREXA [Concomitant]
     Dosage: 5MG UNKNOWN
     Route: 065
  4. LEXAPRO [Concomitant]
     Dosage: 10MG UNKNOWN
     Route: 065
  5. KLONOPIN [Concomitant]
     Route: 065
  6. ATIVAN [Concomitant]
     Route: 065

REACTIONS (1)
  - SOMNOLENCE [None]
